FAERS Safety Report 10478059 (Version 1)
Quarter: 2014Q3

REPORT INFORMATION
  Report Type: Spontaneous
  Country: US (occurrence: US)
  Receive Date: 20140926
  Receipt Date: 20140926
  Transmission Date: 20150326
  Serious: No
  Sender: FDA-Public Use
  Company Number: US-PFIZER INC-2014262844

PATIENT
  Age: 21 Year
  Sex: Female
  Weight: 77.1 kg

DRUGS (5)
  1. CRESTOR [Concomitant]
     Active Substance: ROSUVASTATIN CALCIUM
     Dosage: UNK
  2. LINZESS [Concomitant]
     Active Substance: LINACLOTIDE
     Dosage: 270 UG, UNK
  3. XALATAN [Suspect]
     Active Substance: LATANOPROST
     Indication: PIGMENTARY GLAUCOMA
  4. BABY ASPIRIN [Concomitant]
     Active Substance: ASPIRIN
     Dosage: UNK
  5. XALATAN [Suspect]
     Active Substance: LATANOPROST
     Indication: RETINITIS PIGMENTOSA
     Dosage: UNK

REACTIONS (2)
  - Growth of eyelashes [Not Recovered/Not Resolved]
  - Off label use [Unknown]
